FAERS Safety Report 15592083 (Version 3)
Quarter: 2018Q4

REPORT INFORMATION
  Report Type: Spontaneous
  Country: US (occurrence: US)
  Receive Date: 20181106
  Receipt Date: 20181126
  Transmission Date: 20190205
  Serious: No
  Sender: FDA-Public Use
  Company Number: US-PFIZER INC-2018444359

PATIENT
  Age: 64 Year
  Sex: Female
  Weight: 63.5 kg

DRUGS (2)
  1. XELJANZ [Suspect]
     Active Substance: TOFACITINIB CITRATE
     Indication: RHEUMATOID ARTHRITIS
     Dosage: UNK
     Dates: start: 20181025, end: 20181106
  2. METHOTREXATE. [Concomitant]
     Active Substance: METHOTREXATE
     Dosage: UNK

REACTIONS (4)
  - Back pain [Unknown]
  - Cough [Recovering/Resolving]
  - Muscle strain [Unknown]
  - Pain in extremity [Unknown]

NARRATIVE: CASE EVENT DATE: 201811
